FAERS Safety Report 12770843 (Version 1)
Quarter: 2016Q3

REPORT INFORMATION
  Report Type: Spontaneous
  Country: US (occurrence: US)
  Receive Date: 20160921
  Receipt Date: 20160921
  Transmission Date: 20161109
  Serious: Yes (Other)
  Sender: FDA-Public Use
  Company Number: None

PATIENT
  Age: 4 Month
  Sex: Male
  Weight: 4.2 kg

DRUGS (1)
  1. SENNA [Suspect]
     Active Substance: SENNA LEAF\SENNOSIDES\SENNOSIDES A AND B
     Route: 048
     Dates: start: 20160704, end: 20160809

REACTIONS (3)
  - Transmission of an infectious agent via product [None]
  - Burkholderia cepacia complex infection [None]
  - Product use issue [None]

NARRATIVE: CASE EVENT DATE: 20160904
